FAERS Safety Report 6755290-7 (Version None)
Quarter: 2010Q2

REPORT INFORMATION
  Report Type: 
  Country: None (occurrence: None)
  Receive Date: 20100602
  Receipt Date: 20100520
  Transmission Date: 20101027
  Serious: Yes (Hospitalization, Other)
  Sender: FDA-Public Use
  Company Number: 2010-1719

PATIENT
  Age: 55 Year
  Sex: Male

DRUGS (1)
  1. SOMATULINE AUTOGEL 90MG (LANREOTIDE AUTOGEL) (LANREOTIDE) (LANREOTIDE [Suspect]
     Indication: ACROMEGALY
     Dosage: 90 MG, NOT REPORTED), INTRAMUSCULAR
     Route: 030
     Dates: start: 20061014

REACTIONS (2)
  - BRADYCARDIA [None]
  - FALL [None]
